FAERS Safety Report 5454433-5 (Version None)
Quarter: 2007Q3

REPORT INFORMATION
  Report Type: 
  Country: None (occurrence: None)
  Receive Date: 20070917
  Receipt Date: 20060824
  Transmission Date: 20080115
  Serious: No
  Sender: FDA-Public Use
  Company Number: US-ASTRAZENECA-2006UW16803

PATIENT
  Age: 31 Year
  Sex: Female

DRUGS (6)
  1. SEROQUEL [Suspect]
     Indication: ANXIETY
     Route: 048
  2. SEROQUEL [Suspect]
     Indication: SLEEP DISORDER
     Route: 048
  3. ACIPHEX [Concomitant]
  4. CYMBALTA [Concomitant]
  5. LEXAPRO [Concomitant]
  6. ALTACE [Concomitant]

REACTIONS (3)
  - AKATHISIA [None]
  - INSOMNIA [None]
  - VISION BLURRED [None]
